FAERS Safety Report 7309431-3 (Version None)
Quarter: 2011Q1

REPORT INFORMATION
  Report Type: 
  Country: None (occurrence: None)
  Receive Date: 20110223
  Receipt Date: 20110214
  Transmission Date: 20110831
  Serious: Yes (Other)
  Sender: FDA-Public Use
  Company Number: US-ASTRAZENECA-2011SE08594

PATIENT
  Age: 71 Year
  Sex: Female

DRUGS (17)
  1. FASLODEX [Suspect]
     Indication: BREAST CANCER
     Route: 030
     Dates: start: 20101202
  2. FASLODEX [Suspect]
     Route: 030
     Dates: start: 20101216
  3. ALPHA-LIPOIC ACID [Concomitant]
  4. FASLODEX [Suspect]
     Route: 030
     Dates: start: 20110113
  5. L-CARNITINE [Concomitant]
     Route: 048
  6. FASLODEX [Suspect]
     Route: 030
     Dates: start: 20110210
  7. FENTANYL-100 [Concomitant]
     Route: 061
  8. OXYCODONE [Concomitant]
     Dosage: 2-4 TABLETS EVERY 6 HOURS PRN
     Route: 048
  9. MAGACE [Concomitant]
     Indication: APPETITE DISORDER
  10. LASIX [Concomitant]
     Route: 048
  11. VALIUM [Concomitant]
     Route: 048
  12. LORTAB [Concomitant]
     Dosage: 10/325 MG 2 TABLETS EVERY 6 HOURS
     Route: 048
  13. LACTOBACILLUS [Concomitant]
  14. LISINOPRIL [Concomitant]
     Route: 048
  15. GABAPENTIN [Concomitant]
     Route: 048
  16. ZOFRAN [Concomitant]
     Indication: NAUSEA
  17. XELODA [Concomitant]
     Dosage: 1800 MG BID 2 WEEKS ON, 1 WEEK OFF

REACTIONS (2)
  - PHARYNGEAL OEDEMA [None]
  - DYSPNOEA [None]
